FAERS Safety Report 4632089-9 (Version None)
Quarter: 2005Q2

REPORT INFORMATION
  Report Type: 
  Country: None (occurrence: None)
  Receive Date: 20050411
  Receipt Date: 20050330
  Transmission Date: 20051028
  Serious: Yes (Life-Threatening)
  Sender: FDA-Public Use
  Company Number: HQWYE650304APR05

PATIENT
  Sex: Male

DRUGS (1)
  1. ENBREL [Suspect]
     Indication: DRUG USE FOR UNKNOWN INDICATION
     Dosage: 25 MG ^ALTERNATING-OTHER^
     Route: 058
     Dates: start: 20040402, end: 20040609

REACTIONS (1)
  - TUBERCULOSIS [None]
